FAERS Safety Report 9269308 (Version 1)
Quarter: 2013Q2

REPORT INFORMATION
  Report Type: Spontaneous
  Country: US (occurrence: US)
  Receive Date: 20130503
  Receipt Date: 20130503
  Transmission Date: 20140414
  Serious: No
  Sender: FDA-Public Use
  Company Number: US-PFIZER INC-2013136070

PATIENT
  Age: 59 Year
  Sex: Female
  Weight: 38.1 kg

DRUGS (2)
  1. SUTENT [Suspect]
     Indication: GASTROINTESTINAL NEOPLASM
     Dosage: 25 MG, CYCLIC (STAYS ON THE THERAPY FOR FOUR WEEKS AND THEN STOPS THE THERAPY FOR 3 WEEKS)
     Dates: start: 201206
  2. ZYRTEC [Concomitant]
     Indication: HYPERSENSITIVITY
     Dosage: 10 MG, 1X/DAY

REACTIONS (1)
  - Ageusia [Not Recovered/Not Resolved]
